FAERS Safety Report 22204733 (Version 1)
Quarter: 2023Q2

REPORT INFORMATION
  Report Type: Spontaneous
  Country: CN (occurrence: None)
  Receive Date: 20230413
  Receipt Date: 20230413
  Transmission Date: 20230721
  Serious: Yes (Hospitalization)
  Sender: FDA-Public Use
  Company Number: CN-ROCHE-3327050

PATIENT
  Age: 8 Year
  Sex: Male
  Weight: 33.8 kg

DRUGS (7)
  1. TAMIFLU [Suspect]
     Active Substance: OSELTAMIVIR PHOSPHATE
     Indication: Influenza
     Route: 048
     Dates: start: 20230331, end: 20230331
  2. OSELTAMIVIR PHOSPHATE [Suspect]
     Active Substance: OSELTAMIVIR PHOSPHATE
     Indication: Influenza
     Route: 048
     Dates: start: 20230330, end: 20230330
  3. BALOXAVIR MARBOXIL [Concomitant]
     Active Substance: BALOXAVIR MARBOXIL
     Indication: Influenza
     Route: 048
     Dates: start: 20230330
  4. CEFACLOR [Concomitant]
     Active Substance: CEFACLOR
     Indication: Bronchitis
     Dosage: DF=BAG
     Route: 048
     Dates: start: 20230330, end: 20230330
  5. SACCHAROMYCES CEREVISIAE [Concomitant]
     Active Substance: SACCHAROMYCES CEREVISIAE
     Indication: Gastritis
     Route: 048
     Dates: start: 20230330, end: 20230330
  6. IBUPROFEN [Concomitant]
     Active Substance: IBUPROFEN
     Indication: Pyrexia
     Route: 048
     Dates: start: 20230330, end: 20230331
  7. AMBROXOL HYDROCHLORIDE;CLENBUTEROL HYDROCHLORIDE [Concomitant]
     Indication: Bronchitis
     Route: 048
     Dates: start: 20230330, end: 20230331

REACTIONS (5)
  - Vomiting [Recovered/Resolved]
  - Foaming at mouth [Recovering/Resolving]
  - Syncope [Recovering/Resolving]
  - Ill-defined disorder [Recovering/Resolving]
  - Blood pressure decreased [Recovering/Resolving]

NARRATIVE: CASE EVENT DATE: 20230331
